FAERS Safety Report 9637395 (Version 17)
Quarter: 2019Q2

REPORT INFORMATION
  Report Type: Report from Study
  Country: CA (occurrence: CA)
  Receive Date: 20131022
  Receipt Date: 20190504
  Transmission Date: 20190711
  Serious: Yes (Hospitalization, Other)
  Sender: FDA-Public Use
  Company Number: PHHY2011CA37422

PATIENT
  Age: 75 Year
  Sex: Female

DRUGS (10)
  1. SANDOSTATIN LAR DEPOT [Suspect]
     Active Substance: OCTREOTIDE ACETATE
     Dosage: UNK
     Route: 030
     Dates: start: 20170119
  2. SANDOSTATIN [Suspect]
     Active Substance: OCTREOTIDE ACETATE
     Indication: METASTATIC CARCINOID TUMOUR
     Dosage: UNK, ONCE/SINGLE
     Route: 058
     Dates: start: 20110324, end: 20110324
  3. CALCIUM [Concomitant]
     Active Substance: CALCIUM
     Indication: PRODUCT USED FOR UNKNOWN INDICATION
     Route: 065
  4. SANDOSTATIN [Suspect]
     Active Substance: OCTREOTIDE ACETATE
     Dosage: UNK, ONCE/SINGLE
     Route: 058
     Dates: start: 20110330, end: 20110330
  5. SANDOSTATIN LAR DEPOT [Suspect]
     Active Substance: OCTREOTIDE ACETATE
     Indication: METASTATIC CARCINOID TUMOUR
     Dosage: 20 MG, ONCE A MONTH
     Route: 030
     Dates: start: 20110401, end: 20120412
  6. SANDOSTATIN [Suspect]
     Active Substance: OCTREOTIDE ACETATE
     Dosage: UNK, ONCE/SINGLE
     Route: 058
     Dates: start: 20110329, end: 20110329
  7. SANDOSTATIN LAR DEPOT [Suspect]
     Active Substance: OCTREOTIDE ACETATE
     Dosage: 30 MG, Q3W
     Route: 030
  8. CYCLOBENZAPRINE. [Concomitant]
     Active Substance: CYCLOBENZAPRINE
     Indication: PRODUCT USED FOR UNKNOWN INDICATION
     Route: 065
  9. SANDOSTATIN LAR DEPOT [Suspect]
     Active Substance: OCTREOTIDE ACETATE
     Dosage: 30 MG, QMO
     Route: 030
     Dates: start: 20120511
  10. SYNTHROID [Concomitant]
     Active Substance: LEVOTHYROXINE SODIUM
     Indication: PRODUCT USED FOR UNKNOWN INDICATION
     Dosage: 0.025 MG, QD
     Route: 065

REACTIONS (38)
  - Malignant neoplasm progression [Unknown]
  - Nephrolithiasis [Unknown]
  - Neck pain [Unknown]
  - Back pain [Recovered/Resolved]
  - Vitamin B12 decreased [Unknown]
  - Asthenia [Unknown]
  - Product quality issue [Unknown]
  - Urinary tract infection [Unknown]
  - Pyrexia [Not Recovered/Not Resolved]
  - Kidney infection [Unknown]
  - Fall [Unknown]
  - Blood pressure increased [Unknown]
  - Blood magnesium decreased [Unknown]
  - Discomfort [Unknown]
  - Pyrexia [Recovered/Resolved]
  - Hypoaesthesia [Unknown]
  - Intra-abdominal fluid collection [Unknown]
  - Malaise [Unknown]
  - Small intestinal obstruction [Unknown]
  - Abdominal pain [Recovered/Resolved]
  - Carcinoid tumour [Unknown]
  - Glucose tolerance impaired [Unknown]
  - Vomiting [Recovered/Resolved]
  - Abdominal pain lower [Recovered/Resolved]
  - Inappropriate schedule of product administration [Unknown]
  - Face injury [Unknown]
  - Paraesthesia [Unknown]
  - Contusion [Unknown]
  - Constipation [Unknown]
  - Needle issue [Unknown]
  - Small intestinal obstruction [Recovered/Resolved]
  - Arthralgia [Unknown]
  - Fungal infection [Unknown]
  - Eye pain [Unknown]
  - Haemorrhoids [Unknown]
  - Vision blurred [Unknown]
  - Cataract [Recovering/Resolving]
  - Fatigue [Not Recovered/Not Resolved]

NARRATIVE: CASE EVENT DATE: 20131003
